FAERS Safety Report 7574905-7 (Version None)
Quarter: 2011Q2

REPORT INFORMATION
  Report Type: 
  Country: None (occurrence: None)
  Receive Date: 20110627
  Receipt Date: 20110607
  Transmission Date: 20111010
  Serious: Yes (Other)
  Sender: FDA-Public Use
  Company Number: US-BAYER-2011-049696

PATIENT
  Age: 55 Year
  Sex: Female
  Weight: 58.957 kg

DRUGS (1)
  1. BAYER AM EXTRA STRENGTH [Suspect]
     Indication: HEADACHE
     Dosage: 2 DF, BID
     Route: 048
     Dates: start: 20110603, end: 20110604

REACTIONS (3)
  - POSTMENOPAUSAL HAEMORRHAGE [None]
  - MUSCLE SPASMS [None]
  - ABDOMINAL DISTENSION [None]
